FAERS Safety Report 9898927 (Version 2)
Quarter: 2014Q1

REPORT INFORMATION
  Report Type: Spontaneous
  Country: US (occurrence: US)
  Receive Date: 20140214
  Receipt Date: 20140314
  Transmission Date: 20141002
  Serious: Yes (Death, Hospitalization)
  Sender: FDA-Public Use
  Company Number: US-GLAXOSMITHKLINE-A1034481A

PATIENT
  Age: 75 Year
  Sex: Female

DRUGS (1)
  1. AVANDIA [Suspect]
     Indication: DIABETES MELLITUS
     Dosage: 8MG PER DAY
     Route: 048
     Dates: start: 200106, end: 200203

REACTIONS (5)
  - Cardio-respiratory arrest [Fatal]
  - Cerebrovascular accident [Unknown]
  - Cardiac failure [Unknown]
  - Myocardial ischaemia [Unknown]
  - Arteriosclerosis [Unknown]
